FAERS Safety Report 14125955 (Version 1)
Quarter: 2017Q4

REPORT INFORMATION
  Report Type: Spontaneous
  Country: US (occurrence: US)
  Receive Date: 20171025
  Receipt Date: 20171025
  Transmission Date: 20180321
  Serious: Yes (Hospitalization)
  Sender: FDA-Public Use
  Company Number: US-MALLINCKRODT-T201704257

PATIENT
  Sex: Female
  Weight: 5 kg

DRUGS (1)
  1. H.P. ACTHAR [Suspect]
     Active Substance: CORTICOTROPIN
     Indication: INFANTILE SPASMS
     Dosage: TAPERING DOSAGE-24UNITS TWICE DAILY (0.3ML BID)
     Route: 030

REACTIONS (3)
  - Drug dose omission [Unknown]
  - Condition aggravated [Unknown]
  - Respiratory distress [Unknown]
